FAERS Safety Report 10556623 (Version 1)
Quarter: 2014Q4

REPORT INFORMATION
  Report Type: Report from Study
  Country: US (occurrence: US)
  Receive Date: 20141031
  Receipt Date: 20141031
  Transmission Date: 20150529
  Serious: Yes (Hospitalization)
  Sender: FDA-Public Use
  Company Number: PHEH2014US021452

PATIENT
  Age: 48 Year
  Sex: Female

DRUGS (1)
  1. GILENYA [Suspect]
     Active Substance: FINGOLIMOD HYDROCHLORIDE
     Indication: MULTIPLE SCLEROSIS
     Dosage: 0.5 MG, DAILY
     Route: 048
     Dates: start: 20120927

REACTIONS (8)
  - Headache [Unknown]
  - Hypertension [Unknown]
  - Urinary tract infection [Unknown]
  - Constipation [Unknown]
  - Decreased appetite [Unknown]
  - Somnolence [Unknown]
  - Dysphagia [Unknown]
  - Pneumonia [Unknown]

NARRATIVE: CASE EVENT DATE: 20141001
